FAERS Safety Report 12592412 (Version 2)
Quarter: 2016Q4

REPORT INFORMATION
  Report Type: Spontaneous
  Country: US (occurrence: US)
  Receive Date: 20160726
  Receipt Date: 20161012
  Transmission Date: 20170207
  Serious: No
  Sender: FDA-Public Use
  Company Number: US-PFIZER INC-2016324455

PATIENT
  Age: 75 Year
  Sex: Female
  Weight: 64.4 kg

DRUGS (5)
  1. SPIRONOLACTONE. [Suspect]
     Active Substance: SPIRONOLACTONE
     Indication: DIURETIC THERAPY
     Dosage: 12.5 MG, 2X/DAY
  2. SPIRONOLACTONE. [Suspect]
     Active Substance: SPIRONOLACTONE
     Indication: HYPERTENSION
     Dosage: 12.5 MG, DAILY
     Dates: end: 201510
  3. SPIRONOLACTONE. [Suspect]
     Active Substance: SPIRONOLACTONE
     Indication: BLOOD PRESSURE MEASUREMENT
  4. ATENOLOL. [Suspect]
     Active Substance: ATENOLOL
     Indication: DIURETIC THERAPY
     Dosage: 12.5 MG, 2X/DAY (12.5 MG IN THE MORNING AND 12.5 MG IN THE EVENING)
     Route: 048
  5. ATENOLOL. [Suspect]
     Active Substance: ATENOLOL
     Indication: BLOOD PRESSURE MEASUREMENT

REACTIONS (1)
  - Hypotension [Recovered/Resolved]

NARRATIVE: CASE EVENT DATE: 2015
